FAERS Safety Report 21658994 (Version 1)
Quarter: 2022Q4

REPORT INFORMATION
  Report Type: Report from Study
  Country: US (occurrence: US)
  Receive Date: 20221129
  Receipt Date: 20221129
  Transmission Date: 20230112
  Serious: Yes (Other)
  Sender: FDA-Public Use
  Company Number: US-BAYER-2022A161962

PATIENT
  Age: 55 Year
  Sex: Male

DRUGS (1)
  1. NUBEQA [Suspect]
     Active Substance: DAROLUTAMIDE
     Indication: Hormone-refractory prostate cancer
     Dosage: 600 MG, BID
     Route: 048
     Dates: start: 20221025

REACTIONS (5)
  - Neuropathy peripheral [Recovered/Resolved]
  - Peripheral swelling [Recovered/Resolved]
  - Skin exfoliation [Recovered/Resolved]
  - Onychalgia [Recovered/Resolved]
  - Product dose omission in error [None]

NARRATIVE: CASE EVENT DATE: 20221101
